FAERS Safety Report 22329353 (Version 1)
Quarter: 2023Q2

REPORT INFORMATION
  Report Type: Spontaneous
  Country: US (occurrence: US)
  Receive Date: 20230517
  Receipt Date: 20230517
  Transmission Date: 20230722
  Serious: Yes (Death, Other)
  Sender: FDA-Public Use
  Company Number: US-drreddys-LIT/USA/23/0164029

PATIENT
  Age: 64 Year
  Sex: Male

DRUGS (4)
  1. POSACONAZOLE [Suspect]
     Active Substance: POSACONAZOLE
     Indication: Encephalitis protozoal
  2. COTRIMOXAZOLE [Suspect]
     Active Substance: SULFAMETHOXAZOLE\TRIMETHOPRIM
     Indication: Encephalitis protozoal
  3. MILTEFOSINE [Suspect]
     Active Substance: MILTEFOSINE
     Indication: Encephalitis protozoal
  4. AMPHOTERICIN B [Concomitant]
     Active Substance: AMPHOTERICIN B
     Indication: Aspergillus infection

REACTIONS (2)
  - Death [Fatal]
  - Drug ineffective for unapproved indication [Unknown]
